FAERS Safety Report 7301262-3 (Version None)
Quarter: 2010Q4

REPORT INFORMATION
  Report Type: 
  Country: None (occurrence: None)
  Receive Date: 20101229
  Receipt Date: 20100930
  Transmission Date: 20110411
  Serious: No
  Sender: FDA-Public Use
  Company Number: 1000016555

PATIENT
  Age: 86 Year
  Sex: Female

DRUGS (9)
  1. BYSTOLIC [Suspect]
     Indication: HYPERTENSION
     Dosage: 2.5 MG (2.5 MG, 1 IN 1 D), ORAL, 5 MG (5 MG, 1 IN 1 D), ORAL
     Route: 048
     Dates: end: 20100907
  2. BYSTOLIC [Suspect]
     Indication: HYPERTENSION
     Dosage: 2.5 MG (2.5 MG, 1 IN 1 D), ORAL, 5 MG (5 MG, 1 IN 1 D), ORAL
     Route: 048
     Dates: start: 20090701
  3. BYSTOLIC [Suspect]
     Indication: HYPERTENSION
     Dosage: 2.5 MG (2.5 MG, 1 IN 1 D), ORAL
     Route: 048
     Dates: start: 20100908, end: 20100916
  4. LEVOTHYROXINE (LEVOTHYROXINE SODIUM) (LEVOTHYROXINE SODIUM) [Concomitant]
  5. POTASSIUM [Concomitant]
  6. FUROSEMIDE [Concomitant]
  7. AVALIDE (KARVEA HCT) (KARVEA HCT) [Concomitant]
  8. SIMVASTATIN [Concomitant]
  9. ACTOS (PIOGLITAZONE) (PIOGLITAZONE) [Concomitant]

REACTIONS (3)
  - FLUID RETENTION [None]
  - OEDEMA [None]
  - WEIGHT INCREASED [None]
